FAERS Safety Report 10145991 (Version 1)
Quarter: 2014Q2

REPORT INFORMATION
  Report Type: Spontaneous
  Country: FR (occurrence: FR)
  Receive Date: 20140501
  Receipt Date: 20140501
  Transmission Date: 20141212
  Serious: Yes (Other)
  Sender: FDA-Public Use
  Company Number: PHHY2014FR052870

PATIENT
  Age: 56 Year
  Sex: Female

DRUGS (5)
  1. TEGRETOL [Suspect]
     Indication: BIPOLAR DISORDER
     Dosage: UNK UKN, UNK
     Route: 048
     Dates: start: 201401
  2. EFFEXOR [Suspect]
     Indication: DEPRESSION
     Dosage: UNK UKN, UNK
     Route: 048
  3. IMOVANE [Suspect]
     Dosage: UNK UKN, UNK
     Route: 048
  4. BIPROFENID [Suspect]
     Indication: EAR INFECTION
     Dosage: UNK UKN, UNK
     Route: 048
     Dates: start: 20140325, end: 20140327
  5. AURICULARUM [Suspect]
     Indication: EAR INFECTION
     Dosage: UNK UKN, UNK
     Route: 001
     Dates: start: 201403

REACTIONS (3)
  - Malaise [Recovered/Resolved]
  - Fall [Recovered/Resolved]
  - Loss of consciousness [Recovered/Resolved]
